APPROVED DRUG PRODUCT: PREVACID IV
Active Ingredient: LANSOPRAZOLE
Strength: 30MG/VIAL **Federal Register determination that product was not discontinued or withdrawn for safety or effectiveness reasons**
Dosage Form/Route: INJECTABLE;INTRAVENOUS
Application: N021566 | Product #001
Applicant: TAKEDA PHARMACEUTICALS NORTH AMERICA INC
Approved: May 27, 2004 | RLD: Yes | RS: No | Type: DISCN